FAERS Safety Report 24528887 (Version 2)
Quarter: 2024Q4

REPORT INFORMATION
  Report Type: Spontaneous
  Country: CN (occurrence: CN)
  Receive Date: 20241021
  Receipt Date: 20241024
  Transmission Date: 20250115
  Serious: No
  Sender: EISAI
  Company Number: CN-Eisai-EC-2024-176652

PATIENT
  Age: 46 Year
  Sex: Male
  Weight: 83 kg

DRUGS (1)
  1. LENVATINIB [Suspect]
     Active Substance: LENVATINIB
     Indication: Hepatic cancer
     Route: 048
     Dates: start: 20230730, end: 20240812

REACTIONS (1)
  - Myelosuppression [Unknown]

NARRATIVE: CASE EVENT DATE: 20240813
